FAERS Safety Report 23172227 (Version 1)
Quarter: 2023Q4

REPORT INFORMATION
  Report Type: Spontaneous
  Country: CN (occurrence: CN)
  Receive Date: 20231110
  Receipt Date: 20231110
  Transmission Date: 20240110
  Serious: Yes (Other)
  Sender: FDA-Public Use
  Company Number: CN-SUN PHARMACEUTICAL INDUSTRIES LTD-2023R1-416853

PATIENT
  Age: 45 Year
  Sex: Female

DRUGS (2)
  1. DEXAMETHASONE [Suspect]
     Active Substance: DEXAMETHASONE
     Indication: Bone marrow failure
     Route: 065
  2. THROMBOPOIETIN [Suspect]
     Active Substance: THROMBOPOIETIN
     Indication: Bone marrow failure
     Route: 065

REACTIONS (1)
  - Therapy non-responder [Unknown]
